FAERS Safety Report 7433173-7 (Version None)
Quarter: 2011Q2

REPORT INFORMATION
  Report Type: 
  Country: None (occurrence: None)
  Receive Date: 20110415
  Receipt Date: 20110405
  Transmission Date: 20111010
  Serious: Yes (Death)
  Sender: FDA-Public Use
  Company Number: GER/UKI/11/0017818

PATIENT
  Age: 89 Year
  Sex: Female

DRUGS (15)
  1. DIGOXIN [Concomitant]
  2. LODOSYN [Concomitant]
  3. CARBIMAZOLE (CARBIMAZOLE) [Concomitant]
  4. BISOPROLOL FUMARATE [Concomitant]
  5. IRON (IRON) [Concomitant]
  6. AMOXICILLIN [Concomitant]
  7. FUROSEMIDE (FUROSEMIDE) [Concomitant]
  8. LACTULOSE [Concomitant]
  9. ASPIRIN [Concomitant]
  10. ROPINIROLE [Suspect]
     Indication: PARKINSON'S DISEASE
     Dosage: 3 MG, 1 IN 1 D, ORAL, 6 MG, 1 IN 1 D, ORAL
     Route: 048
  11. FORTISIP (FORTISIP) [Concomitant]
  12. SINEMET [Concomitant]
  13. RISPERIDONE [Suspect]
     Indication: PARKINSON'S DISEASE
     Dosage: ORAL
     Route: 048
  14. SPARTEINE (SPARTEINE) [Concomitant]
  15. LEVODNDA (LEVOTOPA) [Concomitant]

REACTIONS (2)
  - WRONG DRUG ADMINISTERED [None]
  - MEDICATION ERROR [None]
